FAERS Safety Report 5149296-1 (Version None)
Quarter: 2006Q4

REPORT INFORMATION
  Report Type: 
  Country: None (occurrence: None)
  Receive Date: 20061113
  Receipt Date: 20051031
  Transmission Date: 20070319
  Serious: No
  Sender: FDA-Public Use
  Company Number: 423236

PATIENT
  Sex: Male

DRUGS (5)
  1. COREG [Suspect]
     Indication: HYPERTENSION
     Dosage: 25MG TWICE PER DAY
     Route: 048
  2. REGULAR INSULIN [Concomitant]
  3. ERYTHROMYCIN SYRUP [Concomitant]
  4. CLONIDINE [Concomitant]
  5. NPH INSULIN [Concomitant]

REACTIONS (1)
  - BLOOD GLUCOSE INCREASED [None]
